FAERS Safety Report 8572561-2 (Version None)
Quarter: 2012Q3

REPORT INFORMATION
  Report Type: 
  Country: None (occurrence: None)
  Receive Date: 20120806
  Receipt Date: 20120726
  Transmission Date: 20120928
  Serious: Yes (Hospitalization)
  Sender: FDA-Public Use
  Company Number: JP-ROCHE-1094675

PATIENT
  Sex: Female
  Weight: 44 kg

DRUGS (21)
  1. OMALIZUMAB [Suspect]
     Route: 058
     Dates: start: 20120409
  2. VITAMIN B12 [Concomitant]
  3. VENTOLIN [Concomitant]
  4. FAMOTIDINE [Concomitant]
  5. MUCOTRON [Concomitant]
  6. OMALIZUMAB [Suspect]
     Route: 058
     Dates: start: 20120312
  7. PREDNISOLONE [Concomitant]
  8. FOSAMAX [Concomitant]
  9. OMALIZUMAB [Suspect]
     Indication: ASTHMA
     Route: 058
     Dates: start: 20111128
  10. FLUTICASONE PROPIONATE [Concomitant]
     Dates: start: 20110922
  11. MUCOSTA [Concomitant]
  12. OMALIZUMAB [Suspect]
     Route: 058
     Dates: start: 20120507
  13. CEREKINON [Concomitant]
  14. SINGULAIR [Concomitant]
  15. SIGMART [Concomitant]
  16. SYMBICORT [Concomitant]
     Dates: start: 20110922
  17. FLUTICASONE PROPIONATE [Concomitant]
     Dates: start: 20110921
  18. HOKUNALIN [Concomitant]
  19. FLUNASE [Concomitant]
  20. MAGLAX [Concomitant]
  21. DILTIAZEM HCL [Concomitant]

REACTIONS (1)
  - LOWER RESPIRATORY TRACT INFECTION [None]
